FAERS Safety Report 9356350 (Version 1)
Quarter: 2013Q2

REPORT INFORMATION
  Report Type: Spontaneous
  Country: US (occurrence: None)
  Receive Date: 20130614
  Receipt Date: 20130614
  Transmission Date: 20140414
  Serious: Yes (Hospitalization)
  Sender: FDA-Public Use
  Company Number: 2012US000790

PATIENT
  Age: 76 Year
  Sex: Male
  Weight: 73.4 kg

DRUGS (9)
  1. PONATINIB (AP24534) TABLET [Suspect]
     Indication: CHRONIC MYELOID LEUKAEMIA
     Route: 048
     Dates: start: 20120801, end: 20120822
  2. ATENOLOL W/HYDROCHLOROTHIAZIDE [Concomitant]
  3. FOLIC ACID (FOLIC ACID) [Concomitant]
  4. MEGACE (MEGESTROL ACETATE) [Concomitant]
  5. METFORMIN (METFORMIN) [Concomitant]
  6. OMEPRAZOLE (OMEPRAZOLE) [Concomitant]
  7. JANUVIA (SITAGLIPTIN PHOSPHATE) [Concomitant]
  8. LISINOPRIL (LISINOPRIL) [Concomitant]
  9. GLIPIZIDE (GLIPIZIDE) [Concomitant]

REACTIONS (6)
  - Renal failure acute [None]
  - Tumour lysis syndrome [None]
  - Rhabdomyolysis [None]
  - Dehydration [None]
  - Hypophagia [None]
  - Ejection fraction decreased [None]
